FAERS Safety Report 12667194 (Version 1)
Quarter: 2016Q3

REPORT INFORMATION
  Report Type: Spontaneous
  Country: FR (occurrence: FR)
  Receive Date: 20160819
  Receipt Date: 20160819
  Transmission Date: 20161109
  Serious: Yes (Hospitalization)
  Sender: FDA-Public Use
  Company Number: FR-SA-2016SA149134

PATIENT
  Age: 68 Year
  Sex: Female

DRUGS (23)
  1. IRBESARTAN. [Suspect]
     Active Substance: IRBESARTAN
     Indication: HYPERTENSION
     Route: 048
  2. TEICOPLANIN [Concomitant]
     Active Substance: TEICOPLANIN
  3. EUPRESSYL [Concomitant]
     Active Substance: URAPIDIL
  4. NOVORAPID [Concomitant]
     Active Substance: INSULIN ASPART
  5. AMLOR [Concomitant]
     Active Substance: AMLODIPINE BESYLATE
  6. RIFADINE [Suspect]
     Active Substance: RIFAMPIN
     Indication: INFECTION
     Route: 042
     Dates: start: 20160620
  7. AMLODIPINE [Suspect]
     Active Substance: AMLODIPINE BESYLATE
     Indication: HYPERTENSION
     Route: 048
  8. LASILIX [Concomitant]
     Active Substance: FUROSEMIDE
  9. ESOMEPRAZOLE [Concomitant]
     Active Substance: ESOMEPRAZOLE
  10. ZOLPIDEM [Concomitant]
     Active Substance: ZOLPIDEM\ZOLPIDEM TARTRATE
  11. BISOCE [Suspect]
     Active Substance: BISOPROLOL
     Indication: HYPERTENSION
     Route: 048
  12. ATORVASTATIN [Concomitant]
     Active Substance: ATORVASTATIN
  13. HYPERIUM [Concomitant]
     Active Substance: RILMENIDINE PHOSPHATE
  14. ALPRAZOLAM. [Concomitant]
     Active Substance: ALPRAZOLAM
  15. CIPROFLOXACIN. [Concomitant]
     Active Substance: CIPROFLOXACIN
  16. NAFTIDROFURYL [Concomitant]
     Active Substance: NAFRONYL
  17. METFORMIN [Concomitant]
     Active Substance: METFORMIN HYDROCHLORIDE
  18. KARDEGIC [Concomitant]
     Active Substance: ASPIRIN LYSINE
  19. URAPIDIL [Concomitant]
     Active Substance: URAPIDIL
  20. URAPIDIL [Concomitant]
     Active Substance: URAPIDIL
  21. ICAZ [Concomitant]
     Active Substance: ISRADIPINE
  22. ISOPHANE INSULIN [Concomitant]
     Active Substance: INSULIN NOS
  23. LOXEN [Concomitant]
     Active Substance: NICARDIPINE HYDROCHLORIDE

REACTIONS (1)
  - Hypertension [Recovering/Resolving]

NARRATIVE: CASE EVENT DATE: 201607
